FAERS Safety Report 12920133 (Version 1)
Quarter: 2016Q4

REPORT INFORMATION
  Report Type: Spontaneous
  Country: KR (occurrence: KR)
  Receive Date: 20161107
  Receipt Date: 20161107
  Transmission Date: 20170207
  Serious: Yes (Other)
  Sender: FDA-Public Use
  Company Number: KR-009507513-1611KOR003062

PATIENT
  Age: 18 Year
  Sex: Female

DRUGS (1)
  1. DESOGESTREL (+) ETHINYL ESTRADIOL [Suspect]
     Active Substance: DESOGESTREL\ETHINYL ESTRADIOL
     Indication: MENSTRUAL CYCLE MANAGEMENT
     Dosage: 1 TABLET, DAILY
     Route: 048
     Dates: start: 2016, end: 2016

REACTIONS (3)
  - Off label use [Unknown]
  - Myalgia [Unknown]
  - Irritable bowel syndrome [Unknown]
